FAERS Safety Report 13423509 (Version 2)
Quarter: 2017Q2

REPORT INFORMATION
  Report Type: Spontaneous
  Country: US (occurrence: US)
  Receive Date: 20170410
  Receipt Date: 20170413
  Transmission Date: 20170830
  Serious: Yes (Death, Other)
  Sender: FDA-Public Use
  Company Number: PHEH2017US010280

PATIENT
  Age: 36 Year
  Sex: Female

DRUGS (2)
  1. MEKINIST [Suspect]
     Active Substance: TRAMETINIB DIMETHYL SULFOXIDE
     Indication: MALIGNANT MELANOMA
     Dosage: UNK
     Route: 048
     Dates: start: 20161226, end: 20170106
  2. TAFINLAR [Suspect]
     Active Substance: DABRAFENIB MESYLATE
     Indication: MALIGNANT MELANOMA
     Dosage: UNK
     Route: 048
     Dates: start: 20161226, end: 20170106

REACTIONS (5)
  - Pain [Fatal]
  - Pyrexia [Fatal]
  - Fatigue [Fatal]
  - Skin exfoliation [Unknown]
  - Rash macular [Fatal]

NARRATIVE: CASE EVENT DATE: 20170106
